FAERS Safety Report 8771857 (Version 2)
Quarter: 2012Q4

REPORT INFORMATION
  Report Type: 
  Country: US (occurrence: US)
  Receive Date: 20120906
  Receipt Date: 20121017
  Transmission Date: 20130627
  Serious: No
  Sender: FDA-Public Use
  Company Number: US-009507513-1208USA009063

PATIENT
  Sex: Female
  Weight: 81.63 kg

DRUGS (5)
  1. MIRALAX [Suspect]
     Indication: CONSTIPATION
     Dosage: 17 g, bid
     Route: 048
     Dates: start: 201204, end: 201207
  2. MIRALAX [Suspect]
     Indication: MEDICAL OBSERVATION
  3. COUMADIN [Concomitant]
     Indication: CARDIOVASCULAR DISORDER
     Dosage: UNK, Unknown
     Route: 048
  4. SIMVASTATIN [Concomitant]
     Indication: BLOOD CHOLESTEROL
     Dosage: UNK, Unknown
  5. VERAPAMIL [Concomitant]
     Indication: HYPERTENSION
     Dosage: UNK, Unknown

REACTIONS (3)
  - Diarrhoea [Recovered/Resolved]
  - Overdose [Unknown]
  - Incorrect drug administration duration [Unknown]
